FAERS Safety Report 8529543-6 (Version None)
Quarter: 2012Q3

REPORT INFORMATION
  Report Type: 
  Country: None (occurrence: None)
  Receive Date: 20120723
  Receipt Date: 20120629
  Transmission Date: 20120928
  Serious: Yes (Hospitalization, Other)
  Sender: FDA-Public Use
  Company Number: CA-SANOFI-AVENTIS-200616824GDDC

PATIENT
  Age: 73 Year
  Sex: Male

DRUGS (9)
  1. LANTUS [Suspect]
     Indication: DIABETES MELLITUS
     Dosage: DOSE:8 UNIT(S)
     Route: 058
     Dates: start: 20050222
  2. METFORMIN HYDROCHLORIDE [Concomitant]
     Dates: start: 20040601
  3. OPTIPEN [Suspect]
     Indication: DIABETES MELLITUS
  4. RAMIPRIL [Concomitant]
     Dates: start: 20040101
  5. PANTOPRAZOLE [Concomitant]
     Dosage: DOSE AS USED: UNK
  6. BISOPROLOL FUMARATE [Concomitant]
     Dosage: DOSE AS USED: UNK
  7. PLACEBO [Suspect]
     Dosage: DOSE AS USED: UNKNOWN
     Dates: start: 20050222
  8. ASPIRIN [Concomitant]
     Indication: PROPHYLAXIS
     Dates: start: 20000101
  9. PRAVASTATIN [Concomitant]
     Dates: start: 20030101

REACTIONS (1)
  - ADENOCARCINOMA [None]
